FAERS Safety Report 12359058 (Version 1)
Quarter: 2016Q2

REPORT INFORMATION
  Report Type: Spontaneous
  Country: US (occurrence: None)
  Receive Date: 20160511
  Receipt Date: 20160511
  Transmission Date: 20160815
  Serious: No
  Sender: FDA-Public Use
  Company Number: None

PATIENT
  Sex: Male

DRUGS (3)
  1. METFORMIN [Suspect]
     Active Substance: METFORMIN HYDROCHLORIDE
  2. TOUJEO [Suspect]
     Active Substance: INSULIN GLARGINE
  3. LEVAQUIN [Suspect]
     Active Substance: LEVOFLOXACIN

REACTIONS (5)
  - Weight decreased [None]
  - Pneumonia [None]
  - Lung infection [None]
  - Hypersensitivity [None]
  - Visual acuity reduced [None]
